FAERS Safety Report 5563901-7 (Version None)
Quarter: 2007Q4

REPORT INFORMATION
  Report Type: 
  Country: None (occurrence: None)
  Receive Date: 20071217
  Receipt Date: 20071003
  Transmission Date: 20080405
  Serious: No
  Sender: FDA-Public Use
  Company Number: US-ASTRAZENECA-2007UW23095

PATIENT
  Age: 73 Year
  Sex: Male
  Weight: 88.5 kg

DRUGS (10)
  1. CRESTOR [Suspect]
     Indication: BLOOD CHOLESTEROL INCREASED
     Route: 048
     Dates: start: 20070101
  2. CRESTOR [Suspect]
     Route: 048
     Dates: start: 20070101
  3. NIACIN [Concomitant]
  4. LISINOPRIL [Concomitant]
  5. PRESCOS [Concomitant]
  6. ATENOLOL [Concomitant]
  7. FELODIPINE [Concomitant]
  8. METFORMIN HCL [Concomitant]
  9. FISH OIL [Concomitant]
  10. ASPIRIN [Concomitant]

REACTIONS (2)
  - MYALGIA [None]
  - POLLAKIURIA [None]
